FAERS Safety Report 7180376-5 (Version None)
Quarter: 2010Q4

REPORT INFORMATION
  Report Type: 
  Country: None (occurrence: None)
  Receive Date: 20101221
  Receipt Date: 20101216
  Transmission Date: 20110411
  Serious: Yes (Hospitalization)
  Sender: FDA-Public Use
  Company Number: A0900709A

PATIENT
  Age: 54 Year
  Sex: Female

DRUGS (1)
  1. REQUIP [Suspect]

REACTIONS (7)
  - ASTHENIA [None]
  - CHEST DISCOMFORT [None]
  - FATIGUE [None]
  - OROPHARYNGEAL DISCOMFORT [None]
  - PHOTOPSIA [None]
  - VISION BLURRED [None]
  - VISUAL IMPAIRMENT [None]
